FAERS Safety Report 17055323 (Version 1)
Quarter: 2019Q4

REPORT INFORMATION
  Report Type: Spontaneous
  Country: GB (occurrence: US)
  Receive Date: 20191120
  Receipt Date: 20191120
  Transmission Date: 20200122
  Serious: Yes (Hospitalization)
  Sender: FDA-Public Use
  Company Number: GB-CYCLE PHARMACEUTICALS LTD-2019-CYC-000013

PATIENT

DRUGS (1)
  1. NITYR [Suspect]
     Active Substance: NITISINONE
     Indication: PRODUCT USED FOR UNKNOWN INDICATION
     Dosage: 70 MG, QD
     Route: 048

REACTIONS (1)
  - Hospitalisation [Unknown]
